FAERS Safety Report 22083322 (Version 1)
Quarter: 2023Q1

REPORT INFORMATION
  Report Type: Spontaneous
  Country: US (occurrence: US)
  Receive Date: 20230310
  Receipt Date: 20230310
  Transmission Date: 20230418
  Serious: No
  Sender: FDA-Public Use
  Company Number: US-BRISTOL-MYERS SQUIBB COMPANY-2023-033922

PATIENT
  Age: 73 Year
  Sex: Female

DRUGS (1)
  1. REVLIMID [Suspect]
     Active Substance: LENALIDOMIDE
     Indication: Myelodysplastic syndrome
     Route: 048
     Dates: start: 20230131

REACTIONS (5)
  - Fatigue [Unknown]
  - Dyspnoea [Unknown]
  - Nausea [Recovering/Resolving]
  - Neutrophil count decreased [Unknown]
  - Dry skin [Unknown]

NARRATIVE: CASE EVENT DATE: 20230207
